FAERS Safety Report 4846870-4 (Version None)
Quarter: 2005Q4

REPORT INFORMATION
  Report Type: 
  Country: None (occurrence: None)
  Receive Date: 20051207
  Receipt Date: 20051110
  Transmission Date: 20060501
  Serious: Yes (Life-Threatening)
  Sender: FDA-Public Use
  Company Number: 2005UW17164

PATIENT
  Age: 48 Year
  Sex: Female

DRUGS (5)
  1. SEROQUEL [Suspect]
     Indication: BIPOLAR II DISORDER
     Route: 048
  2. SEROQUEL [Interacting]
     Dosage: ACUTE EXACERBATION
     Route: 048
     Dates: start: 20050801
  3. KLONOPIN [Interacting]
     Indication: ANXIETY
     Route: 048
     Dates: start: 20000101
  4. NEURONTIN [Concomitant]
     Indication: BACK PAIN
     Route: 048
  5. POSSIBLE UNSPECIFIED PAIN OR SINUS MEDICATIONS [Concomitant]

REACTIONS (4)
  - DRUG INTERACTION [None]
  - LOSS OF CONSCIOUSNESS [None]
  - SINUSITIS [None]
  - UNRESPONSIVE TO VERBAL STIMULI [None]
